FAERS Safety Report 15924863 (Version 1)
Quarter: 2019Q1

REPORT INFORMATION
  Report Type: Spontaneous
  Country: US (occurrence: US)
  Receive Date: 20190206
  Receipt Date: 20190206
  Transmission Date: 20190417
  Serious: Yes (Hospitalization)
  Sender: FDA-Public Use
  Company Number: US-SA-2019SA032353

PATIENT
  Age: 56 Year
  Sex: Female
  Weight: 87.53 kg

DRUGS (4)
  1. DUPIXENT [Suspect]
     Active Substance: DUPILUMAB
     Indication: ASTHMA
     Dosage: 300 MG, QOW
     Route: 058
     Dates: start: 20181221
  2. AMOXICILLIN. [Concomitant]
     Active Substance: AMOXICILLIN
  3. BOTOX [Concomitant]
     Active Substance: ONABOTULINUMTOXINA
  4. KENALOG [Concomitant]
     Active Substance: TRIAMCINOLONE ACETONIDE
     Dosage: UNK, QOW

REACTIONS (1)
  - Asthma [Recovering/Resolving]
